FAERS Safety Report 14557560 (Version 1)
Quarter: 2018Q1

REPORT INFORMATION
  Report Type: Spontaneous
  Country: RO (occurrence: RO)
  Receive Date: 20180221
  Receipt Date: 20180221
  Transmission Date: 20180509
  Serious: Yes (Hospitalization, Other)
  Sender: FDA-Public Use
  Company Number: RO-ASTRAZENECA-2018SE18958

PATIENT
  Age: 42 Week
  Sex: Male

DRUGS (1)
  1. ESOMEPRAZOLE [Suspect]
     Active Substance: ESOMEPRAZOLE
     Indication: GASTROOESOPHAGEAL REFLUX DISEASE
     Dosage: 0.5 MG/KG/GD = 5 MG/D
     Route: 048

REACTIONS (2)
  - Leukopenia [Unknown]
  - Meningoencephalitis bacterial [Recovered/Resolved with Sequelae]
